FAERS Safety Report 7500432-9 (Version None)
Quarter: 2011Q2

REPORT INFORMATION
  Report Type: 
  Country: None (occurrence: None)
  Receive Date: 20110524
  Receipt Date: 20110419
  Transmission Date: 20111010
  Serious: No
  Sender: FDA-Public Use
  Company Number: US-BRISTOL-MYERS SQUIBB COMPANY-15612237

PATIENT
  Age: 51 Year
  Sex: Male

DRUGS (5)
  1. METFORMIN HCL [Suspect]
     Dosage: MORNING AND AT DINNER
  2. PRAVACHOL [Concomitant]
  3. ONGLYZA [Suspect]
     Dosage: AT LUNCH
  4. LISINOPRIL [Concomitant]
  5. ASPIRIN [Concomitant]

REACTIONS (1)
  - DRUG INEFFECTIVE [None]
